FAERS Safety Report 4357842-0 (Version None)
Quarter: 2004Q2

REPORT INFORMATION
  Report Type: 
  Country: None (occurrence: None)
  Receive Date: 20040512
  Receipt Date: 20040428
  Transmission Date: 20050107
  Serious: Yes (Other)
  Sender: FDA-Public Use
  Company Number: 203632

PATIENT
  Age: 57 Year
  Sex: Female
  Weight: 52 kg

DRUGS (5)
  1. HERCEPTIN [Suspect]
     Indication: BREAST CANCER
     Dosage: SEE IMAGE INTRAVENOUS
     Route: 042
     Dates: start: 20031020, end: 20031020
  2. HERCEPTIN [Suspect]
     Indication: BREAST CANCER
     Dosage: SEE IMAGE INTRAVENOUS
     Route: 042
     Dates: start: 20031028, end: 20031111
  3. KYTRIL [Concomitant]
  4. HYDROCORTISONE SODIUM SUCCINATE [Concomitant]
  5. NEOLAMIN (THIAMINE HYDROCHLORIDE) [Concomitant]

REACTIONS (1)
  - PARALYSIS [None]
